FAERS Safety Report 8544726-7 (Version None)
Quarter: 2012Q3

REPORT INFORMATION
  Report Type: 
  Country: None (occurrence: None)
  Receive Date: 20120727
  Receipt Date: 20120718
  Transmission Date: 20120928
  Serious: Yes (Death, Hospitalization, Other)
  Sender: FDA-Public Use
  Company Number: CL-ROCHE-1082378

PATIENT
  Sex: Male
  Weight: 75 kg

DRUGS (2)
  1. PEGASYS [Suspect]
     Indication: HEPATITIS C
     Route: 058
     Dates: start: 20120523, end: 20120714
  2. COPEGUS [Suspect]
     Indication: HEPATITIS C
     Route: 048
     Dates: start: 20120523, end: 20120714

REACTIONS (4)
  - PYREXIA [None]
  - ORGAN FAILURE [None]
  - ANAEMIA HAEMOLYTIC AUTOIMMUNE [None]
  - ANAEMIA [None]
